FAERS Safety Report 11988904 (Version 4)
Quarter: 2018Q2

REPORT INFORMATION
  Report Type: Spontaneous
  Country: GB (occurrence: GB)
  Receive Date: 20160202
  Receipt Date: 20180427
  Transmission Date: 20180711
  Serious: Yes (Other)
  Sender: FDA-Public Use
  Company Number: PHHY2016GB010998

PATIENT
  Age: 12 Year
  Sex: Female
  Weight: 34 kg

DRUGS (1)
  1. EXJADE [Suspect]
     Active Substance: DEFERASIROX
     Indication: PRODUCT USED FOR UNKNOWN INDICATION
     Dosage: 15 MG/KG (500 MG MON-FRIDAY AND 625MG ON SAT AND SUN)
     Route: 065

REACTIONS (4)
  - Tuberculosis of central nervous system [Unknown]
  - Disseminated tuberculosis [Unknown]
  - Tuberculosis of eye [Unknown]
  - Pulmonary tuberculosis [Unknown]
